FAERS Safety Report 9129330 (Version 1)
Quarter: 2013Q1

REPORT INFORMATION
  Report Type: Spontaneous
  Country: HU (occurrence: HU)
  Receive Date: 20130228
  Receipt Date: 20130228
  Transmission Date: 20140127
  Serious: Yes (Other)
  Sender: FDA-Public Use
  Company Number: HU-MYLANLABS-2013S1004437

PATIENT
  Age: 59 Year
  Sex: Female
  Weight: 125 kg

DRUGS (5)
  1. WARFARIN [Suspect]
     Indication: PRODUCT USED FOR UNKNOWN INDICATION
  2. SYNCUMAR [Suspect]
     Indication: PRODUCT USED FOR UNKNOWN INDICATION
  3. DABIGATRAN [Suspect]
     Indication: PRODUCT USED FOR UNKNOWN INDICATION
  4. CARVEDILOL [Concomitant]
     Indication: PRODUCT USED FOR UNKNOWN INDICATION
  5. ACENOCUMAROL [Concomitant]
     Indication: PRODUCT USED FOR UNKNOWN INDICATION

REACTIONS (6)
  - Drug ineffective [Unknown]
  - International normalised ratio abnormal [Unknown]
  - Dyspnoea [Unknown]
  - Atrial fibrillation [Unknown]
  - Petechiae [Unknown]
  - Abdominal discomfort [Unknown]
